FAERS Safety Report 5347896-7 (Version None)
Quarter: 2007Q2

REPORT INFORMATION
  Report Type: 
  Country: None (occurrence: None)
  Receive Date: 20070516
  Receipt Date: 20061219
  Transmission Date: 20071010
  Serious: Yes (Other)
  Sender: FDA-Public Use
  Company Number: 06-001499

PATIENT
  Age: 43 Year
  Sex: Female
  Weight: 62.1 kg

DRUGS (2)
  1. FEMRING [Suspect]
     Indication: URINARY TRACT INFECTION
     Dosage: SEE IMAGE
     Route: 067
     Dates: start: 20040101, end: 20040101
  2. FEMRING [Suspect]
     Indication: URINARY TRACT INFECTION
     Dosage: SEE IMAGE
     Route: 067
     Dates: start: 20040101, end: 20061216

REACTIONS (5)
  - AMENORRHOEA [None]
  - HEADACHE [None]
  - PANIC ATTACK [None]
  - SLEEP DISORDER [None]
  - VAGINAL HAEMORRHAGE [None]
